FAERS Safety Report 17677788 (Version 2)
Quarter: 2020Q3

REPORT INFORMATION
  Report Type: Spontaneous
  Country: US (occurrence: US)
  Receive Date: 20200416
  Receipt Date: 20200721
  Transmission Date: 20201102
  Serious: Yes (Other)
  Sender: FDA-Public Use
  Company Number: US-LUNDBECK-DKLU3015304

PATIENT
  Age: 31 Year
  Sex: Male

DRUGS (2)
  1. ONFI [Suspect]
     Active Substance: CLOBAZAM
     Indication: LENNOX-GASTAUT SYNDROME
     Route: 048
     Dates: start: 20190213, end: 202004
  2. ONFI [Suspect]
     Active Substance: CLOBAZAM
     Route: 048
     Dates: start: 20200713

REACTIONS (3)
  - Drug withdrawal convulsions [Unknown]
  - Seizure [Unknown]
  - Product dose omission issue [Unknown]

NARRATIVE: CASE EVENT DATE: 202004
